FAERS Safety Report 5647967-1 (Version None)
Quarter: 2008Q1

REPORT INFORMATION
  Report Type: 
  Country: None (occurrence: None)
  Receive Date: 20080229
  Receipt Date: 20080219
  Transmission Date: 20080703
  Serious: Yes (Other)
  Sender: FDA-Public Use
  Company Number: 2008-01497

PATIENT
  Age: 16 Year
  Sex: Female

DRUGS (2)
  1. MEPIVACAINE HYDROCHLORIDE [Suspect]
     Indication: MUSCULOSKELETAL PAIN
     Dosage: VIA PAIN PUMP
     Dates: start: 20060201
  2. MARCAINE [Suspect]
     Indication: MUSCULOSKELETAL PAIN
     Dosage: VIA PAIN PUMP
     Dates: start: 20060201

REACTIONS (2)
  - CHONDROLYSIS [None]
  - INCORRECT DOSE ADMINISTERED [None]
